FAERS Safety Report 14324020 (Version 1)
Quarter: 2017Q4

REPORT INFORMATION
  Report Type: Spontaneous
  Country: US (occurrence: US)
  Receive Date: 20171222
  Receipt Date: 20171222
  Transmission Date: 20180321
  Serious: Yes (Hospitalization)
  Sender: FDA-Public Use
  Company Number: None

PATIENT
  Age: 54 Year
  Sex: Female

DRUGS (5)
  1. ADVAIR DISK AER [Concomitant]
  2. ENOXAPARIN [Concomitant]
     Active Substance: ENOXAPARIN
  3. DILTIAZEM. [Concomitant]
     Active Substance: DILTIAZEM
  4. XELJANZ [Suspect]
     Active Substance: TOFACITINIB CITRATE
     Indication: RHEUMATOID ARTHRITIS
     Route: 048
     Dates: start: 20160219
  5. DICLOFENAC [Concomitant]
     Active Substance: DICLOFENAC

REACTIONS (2)
  - Shoulder arthroplasty [None]
  - Pain [None]

NARRATIVE: CASE EVENT DATE: 20171220
